FAERS Safety Report 10417715 (Version 1)
Quarter: 2014Q2

REPORT INFORMATION
  Report Type: Spontaneous
  Country: US (occurrence: None)
  Receive Date: 20140609
  Receipt Date: 20140609
  Transmission Date: 20141212
  Serious: No
  Sender: FDA-Public Use
  Company Number: 2014TJP005324

PATIENT
  Age: 43 Year
  Sex: Female

DRUGS (4)
  1. BRINTELLIX [Suspect]
     Indication: DEPRESSION
     Dates: start: 20140129
  2. REMBRON (MIRTAZAPINE) [Concomitant]
  3. KLONOPIN (CLONAZEPAM) [Concomitant]
  4. NALTREXONE (NALTREXONE) [Concomitant]

REACTIONS (14)
  - Anger [None]
  - Feeling jittery [None]
  - Feeling abnormal [None]
  - Nausea [None]
  - Dry mouth [None]
  - Dry eye [None]
  - Depressed mood [None]
  - Irritability [None]
  - Asthenia [None]
  - Disturbance in attention [None]
  - Feeling of despair [None]
  - Breast pain [None]
  - Dizziness [None]
  - Drug ineffective [None]
